FAERS Safety Report 10208362 (Version 1)
Quarter: 2014Q2

REPORT INFORMATION
  Report Type: Spontaneous
  Country: FR (occurrence: FR)
  Receive Date: 20140530
  Receipt Date: 20140530
  Transmission Date: 20141212
  Serious: Yes (Other)
  Sender: FDA-Public Use
  Company Number: FR-BRISTOL-MYERS SQUIBB COMPANY-20847216

PATIENT
  Age: 96 Year
  Sex: Female

DRUGS (1)
  1. ERBITUX SOLN FOR INF [Suspect]
     Indication: SQUAMOUS CELL CARCINOMA OF SKIN
     Dosage: LOADING DOSE 400MG/M2 ON 10MAR14?250MG/M2 1/1 WK:17MAR14-ONG
     Route: 042
     Dates: start: 20140310

REACTIONS (1)
  - Peripheral arterial occlusive disease [Not Recovered/Not Resolved]
